FAERS Safety Report 4288866-X (Version None)
Quarter: 2004Q1

REPORT INFORMATION
  Report Type: 
  Country: None (occurrence: None)
  Receive Date: 20040205
  Receipt Date: 20040126
  Transmission Date: 20041129
  Serious: Yes (Other)
  Sender: FDA-Public Use
  Company Number: K200400098

PATIENT
  Age: 58 Year
  Sex: Male

DRUGS (4)
  1. ALTACE [Suspect]
     Indication: CARDIAC FAILURE
     Dosage: 1.25 MG, QD, ORAL
     Route: 048
     Dates: start: 20020213, end: 20020315
  2. OMEPRAZOLE (OMEPORAZOLE) [Concomitant]
  3. FLUTICASONE PROPIONATE [Concomitant]
  4. SERETIDE (FLUTICASONE PROPIONATE, SALMETEROL) [Concomitant]

REACTIONS (3)
  - BONE MARROW DEPRESSION [None]
  - CONFUSIONAL STATE [None]
  - SOMNOLENCE [None]
